FAERS Safety Report 9877573 (Version 1)
Quarter: 2014Q1

REPORT INFORMATION
  Report Type: Other
  Country: US (occurrence: US)
  Receive Date: 20140206
  Receipt Date: 20140206
  Transmission Date: 20141002
  Serious: No
  Sender: FDA-Public Use
  Company Number: US-ACORDA-ACO_38713_2013

PATIENT
  Age: 65 Year
  Sex: Male

DRUGS (1)
  1. AMPYRA [Suspect]
     Indication: GAIT DISTURBANCE
     Dosage: 10 MG, Q 12 HRS
     Route: 048
     Dates: start: 20130912

REACTIONS (4)
  - Foreign body sensation in eyes [Unknown]
  - Pruritus generalised [Unknown]
  - Chills [Unknown]
  - Dizziness [Unknown]
